FAERS Safety Report 20655468 (Version 4)
Quarter: 2023Q2

REPORT INFORMATION
  Report Type: Report from Study
  Country: US (occurrence: US)
  Receive Date: 20220330
  Receipt Date: 20230411
  Transmission Date: 20230721
  Serious: No
  Sender: FDA-Public Use
  Company Number: US-TAKEDA-US202020188

PATIENT
  Age: 51 Year
  Sex: Female
  Weight: 68.02 kg

DRUGS (23)
  1. HUMAN IMMUNOGLOBULIN G [Suspect]
     Active Substance: HUMAN IMMUNOGLOBULIN G
     Indication: Immunodeficiency common variable
     Dosage: 10 GRAM, 1/WEEK
     Route: 058
  2. HUMAN IMMUNOGLOBULIN G [Suspect]
     Active Substance: HUMAN IMMUNOGLOBULIN G
     Indication: Primary immunodeficiency syndrome
     Dosage: 10 GRAM, 1/WEEK
     Route: 058
  3. HUMAN IMMUNOGLOBULIN G [Suspect]
     Active Substance: HUMAN IMMUNOGLOBULIN G
     Indication: Immune system disorder
  4. GAMUNEX-C [Suspect]
     Active Substance: HUMAN IMMUNOGLOBULIN G
     Indication: Primary immunodeficiency syndrome
     Dosage: UNK
     Route: 065
  5. GAMUNEX-C [Suspect]
     Active Substance: HUMAN IMMUNOGLOBULIN G
     Indication: Immunodeficiency common variable
  6. DIPHENHYDRAMINE [Concomitant]
     Active Substance: DIPHENHYDRAMINE
  7. EPINEPHRINE [Concomitant]
     Active Substance: EPINEPHRINE
  8. FLUTICASONE PROPIONATE [Concomitant]
     Active Substance: FLUTICASONE PROPIONATE
  9. ARNUITY ELLIPTA [Concomitant]
     Active Substance: FLUTICASONE FUROATE
  10. CALCIUM\CHOLECALCIFEROL [Concomitant]
     Active Substance: CALCIUM\CHOLECALCIFEROL
  11. ZYRTEC [Concomitant]
     Active Substance: CETIRIZINE HYDROCHLORIDE
  12. ENALAPRIL MALEATE [Concomitant]
     Active Substance: ENALAPRIL MALEATE
  13. SPIRIVA RESPIMAT [Concomitant]
     Active Substance: TIOTROPIUM BROMIDE
  14. CLINDAMYCIN PHOSPHATE [Concomitant]
     Active Substance: CLINDAMYCIN PHOSPHATE
  15. ACETAMINOPHEN [Concomitant]
     Active Substance: ACETAMINOPHEN
  16. TRAZODONE HCL [Concomitant]
     Active Substance: TRAZODONE HYDROCHLORIDE
  17. CLONAZEPAM [Concomitant]
     Active Substance: CLONAZEPAM
  18. FAMOTIDINE [Concomitant]
     Active Substance: FAMOTIDINE
  19. ALBUTEROL SULFATE [Concomitant]
     Active Substance: ALBUTEROL SULFATE
  20. Lmx [Concomitant]
  21. VALACYCLOVIR [Concomitant]
     Active Substance: VALACYCLOVIR HYDROCHLORIDE
  22. VITAMIN D3 [Concomitant]
     Active Substance: CHOLECALCIFEROL
  23. MUCINEX [Concomitant]
     Active Substance: GUAIFENESIN

REACTIONS (16)
  - Impaired work ability [Unknown]
  - Speech disorder [Unknown]
  - Dysphonia [Unknown]
  - Swelling face [Unknown]
  - Asthenia [Unknown]
  - Rash [Unknown]
  - Feeling hot [Unknown]
  - Infusion related reaction [Unknown]
  - Dermatitis contact [Unknown]
  - Brain fog [Unknown]
  - Acute stress disorder [Unknown]
  - Food allergy [Unknown]
  - Mental disorder [Unknown]
  - Depression [Unknown]
  - Anxiety [Unknown]
  - Inability to afford medication [Unknown]

NARRATIVE: CASE EVENT DATE: 20211012
